FAERS Safety Report 4374457-9 (Version None)
Quarter: 2004Q2

REPORT INFORMATION
  Report Type: 
  Country: None (occurrence: None)
  Receive Date: 20040608
  Receipt Date: 20040608
  Transmission Date: 20050107
  Serious: Yes (Hospitalization)
  Sender: FDA-Public Use
  Company Number: None

PATIENT
  Age: 79 Year
  Sex: Male
  Weight: 60.782 kg

DRUGS (8)
  1. CISPLATIN [Suspect]
     Indication: PHARYNGEAL CANCER STAGE UNSPECIFIED
     Dosage: 100 MG/M2 IV DAY 1 22 43
     Route: 042
     Dates: start: 20040510
  2. EXTERNAL RADIATION [Suspect]
     Indication: PHARYNGEAL CANCER STAGE UNSPECIFIED
     Dosage: 2, 064 Q DAY
     Dates: start: 20040510, end: 20040608
  3. FOLIC ACID [Concomitant]
  4. ATENOLOL [Concomitant]
  5. ISOSORBIDE [Concomitant]
  6. LESCOL [Concomitant]
  7. DILTIAZEM [Concomitant]
  8. ASPIRIN [Concomitant]

REACTIONS (4)
  - ASTHENIA [None]
  - MALAISE [None]
  - NEUTROPENIA [None]
  - PNEUMONIA [None]
